FAERS Safety Report 7692837-0 (Version None)
Quarter: 2011Q3

REPORT INFORMATION
  Report Type: 
  Country: None (occurrence: None)
  Receive Date: 20110819
  Receipt Date: 20110810
  Transmission Date: 20111222
  Serious: Yes (Other)
  Sender: FDA-Public Use
  Company Number: US-JNJFOC-20110806509

PATIENT
  Sex: Female
  Weight: 56.7 kg

DRUGS (5)
  1. EFFEXOR XR [Concomitant]
     Indication: DEPRESSION
     Route: 048
  2. LYRICA [Suspect]
     Route: 048
     Dates: start: 20090101, end: 20100501
  3. LYRICA [Suspect]
     Indication: FIBROMYALGIA
     Route: 048
     Dates: start: 20100601
  4. DURAGESIC-100 [Suspect]
     Indication: FIBROMYALGIA
     Route: 062
     Dates: start: 20080101
  5. LEXAPRO [Concomitant]
     Indication: DEPRESSION
     Route: 048

REACTIONS (11)
  - FIBROMYALGIA [None]
  - HYPOTHYROIDISM [None]
  - WEIGHT INCREASED [None]
  - PARALYSIS [None]
  - IMMUNODEFICIENCY COMMON VARIABLE [None]
  - NERVOUS SYSTEM DISORDER [None]
  - WRONG TECHNIQUE IN DRUG USAGE PROCESS [None]
  - PAIN [None]
  - DRUG ADMINISTERED AT INAPPROPRIATE SITE [None]
  - GENERALISED OEDEMA [None]
  - PRODUCT ADHESION ISSUE [None]
